FAERS Safety Report 12685545 (Version 2)
Quarter: 2016Q4

REPORT INFORMATION
  Report Type: Spontaneous
  Country: TW (occurrence: TW)
  Receive Date: 20160825
  Receipt Date: 20161117
  Transmission Date: 20170207
  Serious: Yes (Hospitalization)
  Sender: FDA-Public Use
  Company Number: TW-MERRIMACK PHARMACEUTICALS, INC.-MER-2016-000097

PATIENT

DRUGS (1)
  1. ONIVYDE [Suspect]
     Active Substance: IRINOTECAN HYDROCHLORIDE
     Indication: OVARIAN EPITHELIAL CANCER
     Dosage: UNK
     Dates: start: 20160302

REACTIONS (3)
  - Ovarian epithelial cancer [Recovered/Resolved]
  - Haematemesis [Recovered/Resolved]
  - Obstruction [Recovered/Resolved]

NARRATIVE: CASE EVENT DATE: 20160302
